FAERS Safety Report 5128297-3 (Version None)
Quarter: 2006Q4

REPORT INFORMATION
  Report Type: 
  Country: None (occurrence: None)
  Receive Date: 20061011
  Receipt Date: 20060921
  Transmission Date: 20070319
  Serious: Yes (Hospitalization)
  Sender: FDA-Public Use
  Company Number: US200609001106

PATIENT
  Age: 86 Year

DRUGS (3)
  1. FORTEO [Suspect]
     Indication: OSTEOPOROSIS
     Dosage: 20 UG, DAILY (1/D)
     Dates: start: 20050628, end: 20060601
  2. FORTEO PEN (FORTEO PEN) PEN, DISPOSABLE [Concomitant]
  3. COUMADIN [Concomitant]

REACTIONS (2)
  - LUNG SQUAMOUS CELL CARCINOMA STAGE UNSPECIFIED [None]
  - PHARMACEUTICAL PRODUCT COMPLAINT [None]
